FAERS Safety Report 20021813 (Version 2)
Quarter: 2021Q4

REPORT INFORMATION
  Report Type: Spontaneous
  Country: US (occurrence: US)
  Receive Date: 20211101
  Receipt Date: 20211105
  Transmission Date: 20220304
  Serious: Yes (Death, Other)
  Sender: FDA-Public Use
  Company Number: US-AMGEN-USASP2021167495

PATIENT
  Age: 75 Year
  Sex: Male

DRUGS (6)
  1. PROCRIT [Suspect]
     Active Substance: ERYTHROPOIETIN
     Indication: Myelodysplastic syndrome
     Dosage: 30000 UNIT, QWK
     Route: 058
  2. PROCRIT [Suspect]
     Active Substance: ERYTHROPOIETIN
     Dosage: 30000 UNIT, Q2WK
     Route: 058
  3. FILGRASTIM [Suspect]
     Active Substance: FILGRASTIM
     Indication: Myelodysplastic syndrome
     Dosage: 300 MICROGRAM, 3 TIMES/WK
     Route: 058
  4. FILGRASTIM [Suspect]
     Active Substance: FILGRASTIM
     Dosage: 300 MICROGRAM, QWK
     Route: 058
  5. PREDNISONE [Concomitant]
     Active Substance: PREDNISONE
     Dosage: 20 MILLIGRAM, QD
     Route: 048
  6. PREDNISONE [Concomitant]
     Active Substance: PREDNISONE
     Dosage: 6 MILLIGRAM, QD (FOR THE LAST 6 MONTHS)
     Route: 048

REACTIONS (3)
  - Death [Fatal]
  - COVID-19 [Unknown]
  - Off label use [Unknown]
